FAERS Safety Report 9162565 (Version 1)
Quarter: 2013Q1

REPORT INFORMATION
  Report Type: Spontaneous
  Country: MX (occurrence: MX)
  Receive Date: 20130314
  Receipt Date: 20130314
  Transmission Date: 20140127
  Serious: Yes (Other)
  Sender: FDA-Public Use
  Company Number: MX-PFIZER INC-2013084840

PATIENT
  Sex: Female
  Weight: 60 kg

DRUGS (2)
  1. LYRICA [Suspect]
     Indication: PAIN IN EXTREMITY
     Dosage: UNK MG, SINGLE
     Route: 048
     Dates: start: 2011, end: 2011
  2. LYRICA [Suspect]
     Indication: ARTHRALGIA

REACTIONS (4)
  - Bedridden [Unknown]
  - Disorientation [Unknown]
  - Feeling abnormal [Not Recovered/Not Resolved]
  - Dizziness [Unknown]
